FAERS Safety Report 16291874 (Version 2)
Quarter: 2019Q2

REPORT INFORMATION
  Report Type: Report from Study
  Country: CN (occurrence: CN)
  Receive Date: 20190509
  Receipt Date: 20190517
  Transmission Date: 20190711
  Serious: Yes (Other)
  Sender: FDA-Public Use
  Company Number: CN-ELI_LILLY_AND_COMPANY-CN201905002252

PATIENT
  Age: 32 Year
  Sex: Male

DRUGS (3)
  1. IRINOTECAN [Concomitant]
     Active Substance: IRINOTECAN
     Indication: RECTAL CANCER
     Dosage: UNK
     Dates: end: 2018
  2. RALTITREXED [Concomitant]
     Active Substance: RALTITREXED
     Indication: RECTAL CANCER
     Dosage: UNK
     Dates: end: 2018
  3. CETUXIMAB. [Suspect]
     Active Substance: CETUXIMAB
     Indication: RECTAL CANCER
     Dosage: 500 MG/M2, 2/M
     Route: 042
     Dates: start: 20171103

REACTIONS (2)
  - Off label use [Unknown]
  - Pulmonary embolism [Not Recovered/Not Resolved]

NARRATIVE: CASE EVENT DATE: 20190501
